FAERS Safety Report 5526795-1 (Version None)
Quarter: 2007Q4

REPORT INFORMATION
  Report Type: 
  Country: None (occurrence: None)
  Receive Date: 20071127
  Receipt Date: 20071116
  Transmission Date: 20080405
  Serious: Yes (Hospitalization)
  Sender: FDA-Public Use
  Company Number: US-ROCHE-532531

PATIENT
  Age: 58 Year
  Sex: Female

DRUGS (2)
  1. BONIVA [Suspect]
     Indication: OSTEOPOROSIS
     Route: 065
  2. ANTIVERT [Suspect]
     Route: 065

REACTIONS (4)
  - DIZZINESS [None]
  - NECK PAIN [None]
  - SPEECH DISORDER [None]
  - VISION BLURRED [None]
